FAERS Safety Report 12860658 (Version 1)
Quarter: 2016Q4

REPORT INFORMATION
  Report Type: Report from Study
  Country: CA (occurrence: CA)
  Receive Date: 20161019
  Receipt Date: 20161019
  Transmission Date: 20170207
  Serious: Yes (Hospitalization, Other)
  Sender: FDA-Public Use
  Company Number: CA-AMGEN-CANSL2016142378

PATIENT
  Age: 80 Year
  Sex: Female

DRUGS (3)
  1. PROLIA [Suspect]
     Active Substance: DENOSUMAB
     Indication: OSTEOPOROSIS POSTMENOPAUSAL
     Dosage: UNK
     Route: 065
     Dates: start: 201502
  2. VITAMIN D [Concomitant]
     Active Substance: CHOLECALCIFEROL
     Dosage: 1800 1900 IU, QD
  3. CALCIUM [Concomitant]
     Active Substance: CALCIUM
     Dosage: APPROXIMATELY 500 MG, QD

REACTIONS (7)
  - Hospitalisation [Unknown]
  - Neoplasm malignant [Unknown]
  - Weight decreased [Unknown]
  - Spinal compression fracture [Unknown]
  - Blood count abnormal [Unknown]
  - Arthralgia [Unknown]
  - Pain in extremity [Unknown]

NARRATIVE: CASE EVENT DATE: 201604
